FAERS Safety Report 15119527 (Version 4)
Quarter: 2019Q2

REPORT INFORMATION
  Report Type: Spontaneous
  Country: US (occurrence: US)
  Receive Date: 20180709
  Receipt Date: 20190529
  Transmission Date: 20190711
  Serious: No
  Sender: FDA-Public Use
  Company Number: US-PFIZER INC-2018274468

PATIENT
  Age: 55 Year
  Sex: Male
  Weight: 91 kg

DRUGS (5)
  1. LYRICA [Suspect]
     Active Substance: PREGABALIN
     Indication: DIABETIC NEUROPATHY
     Dosage: 300 MG, 2X/DAY
     Route: 048
     Dates: start: 2016, end: 201806
  2. BUPROPION. [Concomitant]
     Active Substance: BUPROPION
     Indication: DEPRESSION
     Dosage: 300 MG, 1X/DAY
     Dates: start: 2008
  3. METFORMIN [Concomitant]
     Active Substance: METFORMIN HYDROCHLORIDE
     Indication: DIABETES MELLITUS
     Dosage: 1000 MG, 2X/DAY
     Dates: start: 2015
  4. ABILIFY [Concomitant]
     Active Substance: ARIPIPRAZOLE
     Indication: DEPRESSION
     Dosage: 2.5 MG, 1X/DAY
     Dates: start: 2008
  5. PRILOSEC [Concomitant]
     Active Substance: OMEPRAZOLE MAGNESIUM
     Dosage: UNK

REACTIONS (10)
  - Malaise [Recovered/Resolved]
  - Pain [Recovered/Resolved]
  - Headache [Recovered/Resolved]
  - Discomfort [Recovered/Resolved]
  - Blood pressure increased [Recovered/Resolved]
  - Product use issue [Unknown]
  - Insomnia [Recovered/Resolved]
  - Off label use [Unknown]
  - Drug withdrawal syndrome [Recovered/Resolved]
  - Product dose omission [Unknown]

NARRATIVE: CASE EVENT DATE: 2016
